FAERS Safety Report 6788829-6 (Version None)
Quarter: 2010Q2

REPORT INFORMATION
  Report Type: 
  Country: None (occurrence: None)
  Receive Date: 20100623
  Receipt Date: 20081007
  Transmission Date: 20101027
  Serious: No
  Sender: FDA-Public Use
  Company Number: US-PFIZER INC-2008040449

PATIENT
  Sex: Female
  Weight: 121 kg

DRUGS (2)
  1. GENOTROPIN [Suspect]
     Indication: GROWTH HORMONE DEFICIENCY
     Dates: start: 20041001
  2. NO PRODUCT FOUND [Suspect]

REACTIONS (6)
  - ALOPECIA [None]
  - CARPAL TUNNEL SYNDROME [None]
  - DIZZINESS [None]
  - HYPOKALAEMIA [None]
  - INCORRECT DOSE ADMINISTERED [None]
  - URINARY TRACT INFECTION [None]
